FAERS Safety Report 8301259-0 (Version None)
Quarter: 2012Q2

REPORT INFORMATION
  Report Type: 
  Country: None (occurrence: None)
  Receive Date: 20120420
  Receipt Date: 20120420
  Transmission Date: 20120825
  Serious: Yes (Hospitalization)
  Sender: FDA-Public Use
  Company Number: None

PATIENT
  Age: 92 Year
  Sex: Female

DRUGS (2)
  1. RISPERIDONE [Suspect]
     Indication: PSYCHOTIC DISORDER
     Dosage: 1.0 MG
     Route: 048
  2. BUSPAR [Concomitant]
     Indication: DEMENTIA
     Route: 048

REACTIONS (4)
  - MENTAL STATUS CHANGES [None]
  - HYPOTHERMIA [None]
  - UROSEPSIS [None]
  - PNEUMONIA [None]
